FAERS Safety Report 11565333 (Version 1)
Quarter: 2015Q3

REPORT INFORMATION
  Report Type: Spontaneous
  Country: US (occurrence: US)
  Receive Date: 20150916
  Receipt Date: 20150916
  Transmission Date: 20151125
  Serious: No
  Sender: FDA-Public Use
  Company Number: US-ELI_LILLY_AND_COMPANY-US200904005806

PATIENT
  Age: 87 Year
  Sex: Female

DRUGS (8)
  1. STOOL SOFTENER [Concomitant]
     Active Substance: DOCUSATE CALCIUM
  2. LEVODOPA [Concomitant]
     Active Substance: LEVODOPA
  3. MOM [Concomitant]
     Active Substance: MAGNESIUM HYDROXIDE
  4. FORTEO [Suspect]
     Active Substance: TERIPARATIDE
     Indication: OSTEOPOROSIS
     Dates: start: 20090210
  5. CARBIDOPA. [Concomitant]
     Active Substance: CARBIDOPA
  6. PRESERVISION LUTEIN EYE VITA.+MIN.SUP.SOFTG. [Concomitant]
  7. CALCIUM D [Concomitant]
     Active Substance: CALCIUM\VITAMIN D
  8. AZILECT [Concomitant]
     Active Substance: RASAGILINE MESYLATE

REACTIONS (5)
  - Bone fragmentation [Recovering/Resolving]
  - Arthralgia [Recovering/Resolving]
  - Walking aid user [Unknown]
  - Blood calcium increased [Recovered/Resolved]
  - Fall [Recovering/Resolving]

NARRATIVE: CASE EVENT DATE: 20090311
